FAERS Safety Report 24401554 (Version 1)
Quarter: 2024Q4

REPORT INFORMATION
  Report Type: Spontaneous
  Country: US (occurrence: US)
  Receive Date: 20241007
  Receipt Date: 20241007
  Transmission Date: 20250114
  Serious: No
  Sender: ALK-ABELLO
  Company Number: US-ALK-ABELLO A/S-2024AA003515

PATIENT

DRUGS (10)
  1. CARYA ILLINOINENSIS POLLEN [Suspect]
     Active Substance: CARYA ILLINOINENSIS POLLEN
     Indication: Diagnostic procedure
  2. AUVI-Q [Concomitant]
     Active Substance: EPINEPHRINE
     Indication: Product used for unknown indication
     Dosage: 0.15 MILLIGRAM (0.15 MG/0.15 ML AUTO-INJECTOR (FOR 33 LB TO 66 LB PATIENTS))
     Dates: start: 20240812
  3. DIPHENHYDRAMINE HYDROCHLORIDE [Concomitant]
     Active Substance: DIPHENHYDRAMINE HYDROCHLORIDE
     Indication: Product used for unknown indication
     Dosage: 7.5 MILLIGRAM (12:5 RNG/5 ML ORAL LIQUID)
     Route: 048
     Dates: start: 20240812
  4. MOMETASONE FUROATE [Concomitant]
     Active Substance: MOMETASONE FUROATE
     Indication: Product used for unknown indication
     Dosage: 50 MICROGRAM (50 MCG/ACTUATION NASAL SPRAY)
     Route: 045
     Dates: start: 20240812
  5. OSELTAMIVIR PHOSPHATE [Concomitant]
     Active Substance: OSELTAMIVIR PHOSPHATE
     Indication: Product used for unknown indication
     Dosage: 6 MILLIGRAM
     Route: 048
     Dates: start: 20240102
  6. DAE BULK 764 [Concomitant]
  7. DAE BULK 765 [Concomitant]
  8. DAE BULK 763 [Concomitant]
  9. DAE BULK 766 [Concomitant]
  10. PISTACHIO NUT [Concomitant]
     Active Substance: PISTACHIO

REACTIONS (1)
  - False negative investigation result [Unknown]
